FAERS Safety Report 7703695-X (Version None)
Quarter: 2011Q3

REPORT INFORMATION
  Report Type: 
  Country: None (occurrence: None)
  Receive Date: 20110823
  Receipt Date: 20110817
  Transmission Date: 20111222
  Serious: Yes (Other)
  Sender: FDA-Public Use
  Company Number: JP-PFIZER INC-2011189714

PATIENT
  Sex: Female

DRUGS (3)
  1. PREMARIN [Suspect]
     Indication: INFERTILITY FEMALE
  2. PREMARIN [Suspect]
     Indication: OFF LABEL USE
  3. DUPHASTON [Concomitant]

REACTIONS (1)
  - UTERINE HAEMORRHAGE [None]
